FAERS Safety Report 6192675-4 (Version None)
Quarter: 2009Q2

REPORT INFORMATION
  Report Type: 
  Country: None (occurrence: None)
  Receive Date: 20090518
  Receipt Date: 20090508
  Transmission Date: 20091009
  Serious: Yes (Death, Other)
  Sender: FDA-Public Use
  Company Number: US-ROCHE-593722

PATIENT
  Sex: Female
  Weight: 50.8 kg

DRUGS (2)
  1. CAPECITABINE [Suspect]
     Indication: COLORECTAL CANCER
     Dosage: DOSE: 1500 MG IN AM AND 1000 MG IN PM (3 TAB AM, 2 TAB PM).
     Route: 048
     Dates: start: 20080911, end: 20090401
  2. OXALIPLATIN [Suspect]
     Indication: COLORECTAL CANCER
     Route: 042

REACTIONS (3)
  - CROHN'S DISEASE [None]
  - DEATH [None]
  - DIARRHOEA [None]
